FAERS Safety Report 13020528 (Version 1)
Quarter: 2016Q4

REPORT INFORMATION
  Report Type: Spontaneous
  Country: US (occurrence: US)
  Receive Date: 20161212
  Receipt Date: 20161212
  Transmission Date: 20170207
  Serious: Yes (Hospitalization)
  Sender: FDA-Public Use
  Company Number: US-ACTELION-A-US2016-146633

PATIENT
  Age: 73 Year
  Sex: Female

DRUGS (2)
  1. VELETRI [Suspect]
     Active Substance: EPOPROSTENOL
     Indication: PULMONARY ARTERIAL HYPERTENSION
     Dosage: UNK
     Route: 042
     Dates: start: 20100729
  2. REVATIO [Concomitant]
     Active Substance: SILDENAFIL CITRATE

REACTIONS (2)
  - Dyspnoea [Unknown]
  - Respiratory distress [Unknown]
